FAERS Safety Report 24196478 (Version 1)
Quarter: 2024Q3

REPORT INFORMATION
  Report Type: Spontaneous
  Country: US (occurrence: US)
  Receive Date: 20240810
  Receipt Date: 20240810
  Transmission Date: 20241017
  Serious: No
  Sender: ABBVIE
  Company Number: US-ABBVIE-5870194

PATIENT

DRUGS (8)
  1. BOTOX COSMETIC [Suspect]
     Active Substance: ONABOTULINUMTOXINA
     Indication: Muscle disorder
     Dosage: TIME INTERVAL: AS NECESSARY: 20 UNITS
     Route: 065
  2. BOTOX COSMETIC [Suspect]
     Active Substance: ONABOTULINUMTOXINA
     Indication: Muscle disorder
     Dosage: TIME INTERVAL: AS NECESSARY: 20 UNITS
     Route: 065
  3. BOTOX COSMETIC [Suspect]
     Active Substance: ONABOTULINUMTOXINA
     Indication: Muscle disorder
     Dosage: TIME INTERVAL: AS NECESSARY: 10 UNITS
     Route: 065
  4. BOTOX COSMETIC [Suspect]
     Active Substance: ONABOTULINUMTOXINA
     Indication: Muscle disorder
     Dosage: TIME INTERVAL: AS NECESSARY: 10 UNITS
     Route: 065
  5. BOTOX COSMETIC [Suspect]
     Active Substance: ONABOTULINUMTOXINA
     Indication: Muscle disorder
     Dosage: TIME INTERVAL: AS NECESSARY: 4 UNITS
     Route: 065
  6. BOTOX COSMETIC [Suspect]
     Active Substance: ONABOTULINUMTOXINA
     Indication: Muscle disorder
     Dosage: TIME INTERVAL: AS NECESSARY: 4 UNITS
     Route: 065
  7. BOTOX COSMETIC [Suspect]
     Active Substance: ONABOTULINUMTOXINA
     Indication: Muscle disorder
     Dosage: TIME INTERVAL: AS NECESSARY: 6 UNITS
     Route: 065
  8. BOTOX COSMETIC [Suspect]
     Active Substance: ONABOTULINUMTOXINA
     Indication: Muscle disorder
     Dosage: TIME INTERVAL: AS NECESSARY: 20 UNITS
     Route: 065

REACTIONS (1)
  - Off label use [Unknown]
